FAERS Safety Report 8888826 (Version 2)
Quarter: 2013Q1

REPORT INFORMATION
  Report Type: Spontaneous
  Country: BR (occurrence: BR)
  Receive Date: 20121106
  Receipt Date: 20130322
  Transmission Date: 20140127
  Serious: Yes (Hospitalization, Other)
  Sender: FDA-Public Use
  Company Number: PHHY2012BR099434

PATIENT
  Sex: Male

DRUGS (8)
  1. ENALAPRIL [Concomitant]
     Dosage: 2 DF, DAILY
     Route: 048
  2. VASTAREL [Concomitant]
     Dosage: 2 DF, DAILY
     Route: 048
  3. DIOVAN HCT [Suspect]
     Indication: BLOOD PRESSURE
     Dosage: 1 DF (320 MG VALS AND 12.5 MG HYDRO), PER DAY
     Dates: end: 201210
  4. AMLODIPINE [Suspect]
     Indication: HYPERTENSION
     Dosage: 1 DF, PER DAY
  5. AAS [Suspect]
     Indication: HYPERTENSION
     Dosage: 1 DF, PER DAY
  6. SUSTRATE [Suspect]
     Indication: HYPERTENSION
     Dosage: 1 DF, PER DAY
  7. CEBRALAT [Concomitant]
     Dosage: 2 DF, DAILY
     Route: 048
  8. SIMVASTATINA [Concomitant]
     Dosage: 1 DF, DAILY
     Route: 048

REACTIONS (3)
  - Malaise [Recovering/Resolving]
  - Heart rate increased [Recovering/Resolving]
  - Syncope [Recovering/Resolving]
